FAERS Safety Report 4717657-8 (Version None)
Quarter: 2005Q3

REPORT INFORMATION
  Report Type: 
  Country: None (occurrence: None)
  Receive Date: 20050713
  Receipt Date: 20050512
  Transmission Date: 20060218
  Serious: Yes (Other)
  Sender: FDA-Public Use
  Company Number: 404714

PATIENT
  Age: 48 Year
  Sex: Male

DRUGS (8)
  1. FUZEON [Suspect]
     Dates: start: 20040115, end: 20040515
  2. TENOFOVIR (TENOFOVIR) [Concomitant]
  3. EMTRICITABINE (EMTRICITABINE) [Concomitant]
  4. FOSAMPRENAVIR (FOSAMPRENAVIR) [Concomitant]
  5. RITONAVIR (RITONAVIR) [Concomitant]
  6. INDINAVIR (INDINAVIR) [Concomitant]
  7. METHADONE HCL [Concomitant]
  8. GABAPENTIN [Concomitant]

REACTIONS (1)
  - HYPERSENSITIVITY [None]
